FAERS Safety Report 22858579 (Version 2)
Quarter: 2024Q3

REPORT INFORMATION
  Report Type: Spontaneous
  Country: US (occurrence: US)
  Receive Date: 20230824
  Receipt Date: 20240829
  Transmission Date: 20241016
  Serious: No
  Sender: BOSTON SCIENTIFIC
  Company Number: US-BSC-2023000036

PATIENT
  Age: 52 Year
  Sex: Female

DRUGS (1)
  1. VARITHENA [Suspect]
     Active Substance: POLIDOCANOL
     Indication: Varicose vein
     Dosage: SERIAL NUMBER: 16997349396207
     Dates: start: 20230724

REACTIONS (2)
  - Arthralgia [Recovered/Resolved]
  - Pain in extremity [Recovered/Resolved]

NARRATIVE: CASE EVENT DATE: 20230724
